FAERS Safety Report 9692661 (Version 1)
Quarter: 2013Q4

REPORT INFORMATION
  Report Type: Report from Study
  Country: DK (occurrence: DK)
  Receive Date: 20131118
  Receipt Date: 20131118
  Transmission Date: 20140711
  Serious: Yes (Hospitalization)
  Sender: FDA-Public Use
  Company Number: PHHO2013DK014858

PATIENT
  Sex: 0

DRUGS (7)
  1. CGS 20267 [Suspect]
     Indication: BREAST CANCER
     Dosage: 2.5 MG, QD
     Route: 048
     Dates: start: 20110301
  2. LANSOPRAZOL [Concomitant]
     Dosage: 40 MG, UNK
     Route: 048
     Dates: start: 20060415
  3. BISACODYL [Concomitant]
     Dosage: 10 MG, UNK
     Route: 048
     Dates: start: 20130918
  4. CALCIUM + VITAMIN D                /01483701/ [Concomitant]
     Dosage: 400 MG + 19 UG
     Route: 048
     Dates: start: 20060625
  5. LOSARTAN + HIDROCLOROTIAZIDA [Concomitant]
     Dosage: 100 MG + 12.5 MG
     Route: 048
     Dates: start: 20130527
  6. IBROFEN [Concomitant]
     Dosage: 1200 MG, UNK
     Route: 048
     Dates: start: 20130913
  7. PARACETAMOL [Concomitant]
     Dosage: 4000 MG, UNK
     Route: 048
     Dates: start: 20130917

REACTIONS (1)
  - Osteoarthritis [Recovered/Resolved]
